FAERS Safety Report 7118249-6 (Version None)
Quarter: 2010Q4

REPORT INFORMATION
  Report Type: 
  Country: None (occurrence: None)
  Receive Date: 20101123
  Receipt Date: 20101119
  Transmission Date: 20110411
  Serious: Yes (Other)
  Sender: FDA-Public Use
  Company Number: US-BAYER-201040636NA

PATIENT
  Age: 54 Year
  Sex: Female

DRUGS (17)
  1. BETASERON [Suspect]
     Indication: MULTIPLE SCLEROSIS
     Route: 058
     Dates: start: 19990226, end: 20010601
  2. BETASERON [Suspect]
     Dosage: TOTAL DAILY DOSE: 2 MIU
     Route: 058
     Dates: start: 20101029
  3. VALIUM [Concomitant]
  4. GABAPENTIN [Concomitant]
  5. NEXIUM [Concomitant]
  6. PINDOL [Concomitant]
  7. MICARDIS [Concomitant]
  8. PRISTIQ [Concomitant]
  9. AMANTADINE [Concomitant]
  10. CELEBREX [Concomitant]
  11. ESTRADIOL [Concomitant]
  12. LEVOTHYROXINE SODIUM [Concomitant]
  13. FISH OIL [Concomitant]
  14. VITAMIN TAB [Concomitant]
  15. CALCIUM [Concomitant]
  16. VITAMIN B-12 [Concomitant]
  17. SINGULAIR [Concomitant]

REACTIONS (7)
  - ASTHENIA [None]
  - CHEST PAIN [None]
  - DIZZINESS [None]
  - INSOMNIA [None]
  - LOSS OF CONSCIOUSNESS [None]
  - NAUSEA [None]
  - PAIN [None]
